FAERS Safety Report 15256910 (Version 2)
Quarter: 2019Q1

REPORT INFORMATION
  Report Type: Spontaneous
  Country: US (occurrence: US)
  Receive Date: 20180808
  Receipt Date: 20190104
  Transmission Date: 20190417
  Serious: No
  Sender: FDA-Public Use
  Company Number: US-ACTELION-A-NJ2018-171904

PATIENT
  Age: 49 Year
  Sex: Male
  Weight: 56.69 kg

DRUGS (3)
  1. OPSUMIT [Suspect]
     Active Substance: MACITENTAN
     Indication: PULMONARY ARTERIAL HYPERTENSION
     Dosage: 10 MG, UNK
     Route: 048
  2. SILDENAFIL. [Concomitant]
     Active Substance: SILDENAFIL
  3. TYVASO [Concomitant]
     Active Substance: TREPROSTINIL

REACTIONS (6)
  - Bronchitis [Unknown]
  - Upper respiratory tract congestion [Unknown]
  - Dyspnoea [Unknown]
  - Rhinorrhoea [Unknown]
  - Pyrexia [Unknown]
  - Upper respiratory tract infection [Unknown]

NARRATIVE: CASE EVENT DATE: 20180728
